FAERS Safety Report 4378695-0 (Version None)
Quarter: 2004Q2

REPORT INFORMATION
  Report Type: 
  Country: None (occurrence: None)
  Receive Date: 20040610
  Receipt Date: 20040602
  Transmission Date: 20050107
  Serious: Yes (Hospitalization)
  Sender: FDA-Public Use
  Company Number: GBWYE801803JUN04

PATIENT
  Sex: Male

DRUGS (12)
  1. RAPAMUNE [Suspect]
     Dosage: 2-3 MG ON ALTERNATE DAYS UNKNOWN
     Route: 065
     Dates: start: 20021101
  2. ATORVASTATIN (ATORVASTATIN) [Concomitant]
  3. ATENOLOL [Concomitant]
  4. FUROSEMIDE [Concomitant]
  5. ISOSORBIDE MONONITRATE [Concomitant]
  6. NIFEDIPINE [Concomitant]
  7. ASPIRIN [Concomitant]
  8. MAXEPA (CITRIC ACID/FATTY ACIDS NOS/GLUCOSE/INSULIN/INSULIN HUMAN INJE [Concomitant]
  9. LANSOPRAZOLE [Concomitant]
  10. LANTUS [Concomitant]
  11. INSULIN [Concomitant]
  12. ARANESP [Concomitant]

REACTIONS (3)
  - PANCYTOPENIA [None]
  - REFUSAL OF TREATMENT BY PATIENT [None]
  - RENAL FAILURE [None]
